FAERS Safety Report 5257362-5 (Version None)
Quarter: 2007Q1

REPORT INFORMATION
  Report Type: 
  Country: None (occurrence: None)
  Receive Date: 20061211
  Receipt Date: 20040428
  Transmission Date: 20070707
  Serious: Yes (Hospitalization)
  Sender: FDA-Public Use
  Company Number: 2004UW08639

PATIENT
  Age: 49 Year
  Sex: Male
  Weight: 89.3586 kg

DRUGS (2)
  1. ACCOLATE [Suspect]
     Indication: ASTHMA
     Dosage: 20 MG PO
     Route: 048
     Dates: start: 20030701
  2. STEROIDS [Concomitant]

REACTIONS (5)
  - ALLERGIC GRANULOMATOUS ANGIITIS [None]
  - ARTHRALGIA [None]
  - ARTHRITIS [None]
  - RASH PRURITIC [None]
  - THROMBOPHLEBITIS [None]
